FAERS Safety Report 17289884 (Version 1)
Quarter: 2020Q1

REPORT INFORMATION
  Report Type: Spontaneous
  Country: US (occurrence: US)
  Receive Date: 20200120
  Receipt Date: 20200120
  Transmission Date: 20200409
  Serious: No
  Sender: FDA-Public Use
  Company Number: US-GE HEALTHCARE LIFE SCIENCES-2019CSU003010

PATIENT
  Sex: Female

DRUGS (7)
  1. MULTIHANCE [Suspect]
     Active Substance: GADOBENATE DIMEGLUMINE
     Indication: MAGNETIC RESONANCE IMAGING
     Dosage: UNK, SINGLE
     Route: 065
     Dates: start: 20150608, end: 20150608
  2. MULTIHANCE [Suspect]
     Active Substance: GADOBENATE DIMEGLUMINE
     Dosage: UNK, SINGLE
     Route: 065
     Dates: start: 20180924, end: 20180924
  3. OMNISCAN [Suspect]
     Active Substance: GADODIAMIDE
     Indication: MAGNETIC RESONANCE IMAGING
     Dosage: UNK UNK, SINGLE
     Route: 065
     Dates: start: 20080812, end: 20080812
  4. OMNISCAN [Suspect]
     Active Substance: GADODIAMIDE
     Indication: ANGIOGRAM
     Dosage: UNK, SINGLE
     Route: 065
     Dates: start: 20100120, end: 20100120
  5. MULTIHANCE [Suspect]
     Active Substance: GADOBENATE DIMEGLUMINE
     Indication: ANGIOGRAM
     Dosage: UNK, SINGLE
     Route: 065
     Dates: start: 20160615, end: 20160615
  6. MULTIHANCE [Suspect]
     Active Substance: GADOBENATE DIMEGLUMINE
     Indication: PRODUCT USED FOR UNKNOWN INDICATION
     Dosage: UNK, SINGLE
     Route: 065
     Dates: start: 20170911, end: 20170911
  7. OMNISCAN [Suspect]
     Active Substance: GADODIAMIDE
     Indication: PRODUCT USED FOR UNKNOWN INDICATION
     Dosage: UNK, SINGLE
     Route: 065
     Dates: start: 20140425, end: 20140425

REACTIONS (1)
  - Urine analysis abnormal [Unknown]

NARRATIVE: CASE EVENT DATE: 20181115
